FAERS Safety Report 5974906-6 (Version None)
Quarter: 2008Q4

REPORT INFORMATION
  Report Type: 
  Country: None (occurrence: None)
  Receive Date: 20081202
  Receipt Date: 20081126
  Transmission Date: 20090506
  Serious: Yes (Other)
  Sender: FDA-Public Use
  Company Number: JP-PFIZER INC-2008100322

PATIENT
  Age: 16 Year

DRUGS (3)
  1. GABAPEN [Suspect]
     Dosage: DAILY DOSE:1800MG
     Route: 048
  2. EXCEGRAN [Concomitant]
  3. TEGRETOL [Concomitant]

REACTIONS (1)
  - CONVULSION [None]
